FAERS Safety Report 21344309 (Version 1)
Quarter: 2022Q3

REPORT INFORMATION
  Report Type: Spontaneous
  Country: BR (occurrence: BR)
  Receive Date: 20220916
  Receipt Date: 20220916
  Transmission Date: 20221026
  Serious: Yes (Hospitalization, Other)
  Sender: FDA-Public Use
  Company Number: BR-DLA-2022016637

PATIENT
  Sex: Female

DRUGS (1)
  1. MEPIVACAINE HYDROCHLORIDE [Suspect]
     Active Substance: MEPIVACAINE HYDROCHLORIDE
     Indication: Dental local anaesthesia
     Dosage: 1/2 CARTRIDGE
     Route: 004
     Dates: start: 20220903, end: 20220903

REACTIONS (3)
  - Facial paralysis [Recovered/Resolved]
  - Eyelid ptosis [Recovered/Resolved]
  - Blood pressure increased [Recovered/Resolved]

NARRATIVE: CASE EVENT DATE: 20220903
